FAERS Safety Report 7386416 (Version 31)
Quarter: 2014Q1

REPORT INFORMATION
  Report Type: Spontaneous
  Country: US (occurrence: US)
  Receive Date: 20100513
  Receipt Date: 20140101
  Transmission Date: 20141002
  Serious: Yes (Hospitalization, Other)
  Sender: FDA-Public Use
  Company Number: PHEH2010US03416

PATIENT
  Age: 74 Year
  Sex: Female

DRUGS (30)
  1. AREDIA [Suspect]
     Route: 042
     Dates: start: 199804
  2. ZOMETA [Suspect]
     Route: 042
     Dates: end: 200607
  3. FEMARA [Concomitant]
  4. ASPIRIN [Concomitant]
     Dosage: 81 MG, DAILY
     Route: 048
  5. DETROL [Concomitant]
     Route: 048
  6. LISINOPRIL [Concomitant]
     Route: 048
  7. CARVEDILOL [Concomitant]
  8. DARVOCET-N [Concomitant]
  9. CLINDAMYCIN [Concomitant]
  10. VASOTEC [Concomitant]
     Dosage: 2.5 MG, DAILY
     Route: 048
  11. TORADOL [Concomitant]
     Route: 042
  12. REGLAN [Concomitant]
     Dosage: 10 MG, Q6H PRN
     Route: 042
  13. PHENERGAN [Concomitant]
     Dosage: 25 MG, Q6H
  14. BENADRYL [Concomitant]
     Dosage: 25 MG, Q4H
     Route: 048
  15. ZOFRAN [Concomitant]
     Dosage: 10 MG, Q8H
     Route: 042
  16. DILAUDID [Concomitant]
  17. NEUTRA-PHOS [Concomitant]
  18. BETADINE [Concomitant]
     Route: 061
  19. DOXYCYCLINE [Concomitant]
  20. AMBIEN [Concomitant]
  21. TYLENOL [Concomitant]
     Dosage: 500 MG, BID
     Route: 048
  22. NARCAN [Concomitant]
  23. CHEMOTHERAPEUTICS [Concomitant]
  24. COREG [Concomitant]
     Dosage: 3.125 MG, BID
  25. LASIX [Concomitant]
     Dosage: 20 MG, QW3
  26. DITROPAN [Concomitant]
     Dosage: 5 MG, QD
  27. PROVIGIL [Concomitant]
     Dosage: 200 MG, QD
  28. RAZADYNE [Concomitant]
  29. CEFTAZIDIME [Concomitant]
     Dosage: 2 G, Q12H
     Route: 041
  30. TAMOXIFEN [Concomitant]

REACTIONS (133)
  - Ejection fraction decreased [Unknown]
  - Cardiomegaly [Unknown]
  - Osteonecrosis of jaw [Unknown]
  - Injury [Unknown]
  - Pain [Unknown]
  - Anxiety [Unknown]
  - Anhedonia [Unknown]
  - Osteopenia [Unknown]
  - Metastases to bone [Unknown]
  - Rotator cuff syndrome [Unknown]
  - Cyst [Unknown]
  - Hypoaesthesia [Unknown]
  - Atelectasis [Unknown]
  - Pathological fracture [Unknown]
  - Spinal compression fracture [Unknown]
  - Intervertebral disc degeneration [Unknown]
  - Vertebral foraminal stenosis [Unknown]
  - Uterine prolapse [Unknown]
  - Scapula fracture [Unknown]
  - Synovial cyst [Unknown]
  - Nerve compression [Unknown]
  - Osteoarthritis [Unknown]
  - Bursitis [Unknown]
  - Renal cyst [Unknown]
  - Congenital cystic kidney disease [Unknown]
  - Bone lesion [Unknown]
  - Attention deficit/hyperactivity disorder [Unknown]
  - Dementia [Unknown]
  - Cardiomyopathy [Unknown]
  - Mitral valve incompetence [Unknown]
  - Cardiac failure congestive [Unknown]
  - Emphysema [Unknown]
  - Gait disturbance [Not Recovered/Not Resolved]
  - Normal pressure hydrocephalus [Recovered/Resolved]
  - Bronchiectasis [Unknown]
  - Pulmonary mass [Unknown]
  - Cardiac pseudoaneurysm [Unknown]
  - Renal cyst haemorrhage [Unknown]
  - Diverticulum intestinal [Unknown]
  - Bladder prolapse [Unknown]
  - Incontinence [Unknown]
  - Urinary tract infection [Unknown]
  - Pulmonary fibrosis [Unknown]
  - Vulvovaginitis [Unknown]
  - Vaginal erosion [Unknown]
  - Labia enlarged [Unknown]
  - Cystocele [Unknown]
  - Rectocele [Unknown]
  - Ovarian cyst [Unknown]
  - Osteoporosis [Unknown]
  - Uterine leiomyoma [Unknown]
  - Cervicitis [Unknown]
  - Hepatic steatosis [Unknown]
  - Transient ischaemic attack [Unknown]
  - Cor pulmonale chronic [Unknown]
  - Right ventricular hypertrophy [Unknown]
  - Ventricular tachycardia [Unknown]
  - Myocardial ischaemia [Unknown]
  - Dyspnoea [Unknown]
  - Bundle branch block [Unknown]
  - Left ventricular dysfunction [Unknown]
  - Azotaemia [Unknown]
  - Leukocytosis [Unknown]
  - Cerebral atrophy [Unknown]
  - Arteriosclerosis [Unknown]
  - Pseudomonas test positive [Unknown]
  - Pulmonary hypertension [Unknown]
  - Chronic obstructive pulmonary disease [Unknown]
  - Cerebrovascular accident [Unknown]
  - Arrhythmia [Unknown]
  - Tricuspid valve incompetence [Unknown]
  - Escherichia infection [Unknown]
  - Polyuria [Unknown]
  - Pneumocephalus [Recovered/Resolved]
  - Scoliosis [Unknown]
  - Periarthritis [Unknown]
  - Cataract [Unknown]
  - Atrial fibrillation [Unknown]
  - Confusional state [Unknown]
  - Depression [Unknown]
  - Vertebrobasilar insufficiency [Unknown]
  - Muscle atrophy [Unknown]
  - Arthropathy [Unknown]
  - Ventricular hypokinesia [Unknown]
  - Gastrooesophageal reflux disease [Unknown]
  - Cerebral small vessel ischaemic disease [Unknown]
  - Osteomyelitis chronic [Unknown]
  - Bone cyst [Unknown]
  - Dental discomfort [Unknown]
  - Sensitivity of teeth [Unknown]
  - Breath odour [Unknown]
  - Oral disorder [Unknown]
  - Salivary gland mass [Unknown]
  - Amnesia [Unknown]
  - Aortic aneurysm [Unknown]
  - Hypertension [Unknown]
  - Hyperlipidaemia [Unknown]
  - Dental plaque [Unknown]
  - Dental caries [Unknown]
  - Musculoskeletal disorder [Unknown]
  - Neurogenic bladder [Unknown]
  - Urethral stenosis [Unknown]
  - Haematoma [Unknown]
  - Cerebral ventricle dilatation [Unknown]
  - Atrial tachycardia [Unknown]
  - Pneumonia [Unknown]
  - Hypoxia [Unknown]
  - Pulmonary oedema [Unknown]
  - Hiatus hernia [Unknown]
  - Acidosis [Unknown]
  - Lung infiltration [Unknown]
  - Osteolysis [Unknown]
  - Metastases to spine [Unknown]
  - Wound [Unknown]
  - Influenza A virus test positive [Unknown]
  - Musculoskeletal chest pain [Unknown]
  - Spinal osteoarthritis [Unknown]
  - Deformity [Unknown]
  - Oestrogen deficiency [Unknown]
  - Nausea [Unknown]
  - Dizziness [Unknown]
  - Coronary artery disease [Unknown]
  - Haemorrhoids [Unknown]
  - Sick sinus syndrome [Unknown]
  - Bone pain [Unknown]
  - Pericardial effusion [Unknown]
  - Rib fracture [Recovered/Resolved]
  - Arcus lipoides [Unknown]
  - Onychomycosis [Unknown]
  - Joint swelling [Unknown]
  - Breast calcifications [Unknown]
  - Contusion [Unknown]
  - Ligament sprain [Unknown]
